FAERS Safety Report 16799686 (Version 1)
Quarter: 2019Q3

REPORT INFORMATION
  Report Type: Spontaneous
  Country: US (occurrence: US)
  Receive Date: 20190722
  Receipt Date: 20190722
  Transmission Date: 20191005
  Serious: Yes (Disabling)
  Sender: FDA-Public Use
  Company Number: None

PATIENT
  Age: 77 Year
  Sex: Female
  Weight: 80.74 kg

DRUGS (15)
  1. BUSPIRONE [Concomitant]
     Active Substance: BUSPIRONE HYDROCHLORIDE
  2. ELIQUIS [Concomitant]
     Active Substance: APIXABAN
  3. IBANDRONATE SODIUM TABLET (EQUIVALENT TO 150MG IBANDRONIC ACID) [Suspect]
     Active Substance: IBANDRONATE SODIUM
     Indication: OSTEOPOROSIS
     Dosage: ?          QUANTITY:1 PILL;?
     Route: 048
     Dates: start: 20190424, end: 20190624
  4. MEDTRONIC PACEMAKER DEFIBRILLATOR [Concomitant]
     Active Substance: DEVICE
  5. VALSARTAN. [Concomitant]
     Active Substance: VALSARTAN
  6. LEVOTHYROXINE. [Concomitant]
     Active Substance: LEVOTHYROXINE
  7. SODIUM CHLORIDE. [Concomitant]
     Active Substance: SODIUM CHLORIDE
  8. VITAMIN B12 [Concomitant]
     Active Substance: CYANOCOBALAMIN
  9. VITAMIN D3 [Concomitant]
     Active Substance: CHOLECALCIFEROL
  10. SIMVASTATIN. [Concomitant]
     Active Substance: SIMVASTATIN
  11. RISPERIDONE. [Concomitant]
     Active Substance: RISPERIDONE
  12. NIFEDIPINE. [Concomitant]
     Active Substance: NIFEDIPINE
  13. TYLENOL [Concomitant]
     Active Substance: ACETAMINOPHEN
  14. ADVAIR DISKUS [Concomitant]
     Active Substance: FLUTICASONE PROPIONATE\SALMETEROL XINAFOATE
  15. ATENOLOL. [Concomitant]
     Active Substance: ATENOLOL

REACTIONS (5)
  - Hypoaesthesia [None]
  - Joint injury [None]
  - Fall [None]
  - Back injury [None]
  - Head injury [None]

NARRATIVE: CASE EVENT DATE: 20190519
